FAERS Safety Report 7753240-8 (Version None)
Quarter: 2011Q3

REPORT INFORMATION
  Report Type: 
  Country: None (occurrence: None)
  Receive Date: 20110915
  Receipt Date: 20110708
  Transmission Date: 20111222
  Serious: No
  Sender: FDA-Public Use
  Company Number: US-GLAXOSMITHKLINE-A0913943A

PATIENT
  Age: 31 Year
  Sex: Female

DRUGS (3)
  1. NICORETTE (MINT) [Suspect]
     Indication: EX-TOBACCO USER
     Dates: start: 20110101
  2. NICODERM [Suspect]
     Indication: SMOKING CESSATION THERAPY
     Dosage: 7MG UNKNOWN
     Route: 062
     Dates: start: 20110616
  3. NICORETTE [Suspect]
     Indication: EX-TOBACCO USER
     Dates: start: 20110101

REACTIONS (7)
  - DENTAL CARIES [None]
  - APPLICATION SITE ERYTHEMA [None]
  - NICOTINE DEPENDENCE [None]
  - DRUG ADMINISTRATION ERROR [None]
  - ORAL DISCOMFORT [None]
  - ORAL PAIN [None]
  - TOOTH DISORDER [None]
